FAERS Safety Report 23684803 (Version 4)
Quarter: 2024Q2

REPORT INFORMATION
  Report Type: Report from Study
  Country: CA (occurrence: CA)
  Receive Date: 20240328
  Receipt Date: 20240423
  Transmission Date: 20240716
  Serious: Yes (Other)
  Sender: FDA-Public Use
  Company Number: CA-BAUSCH-BL-2024-004848

PATIENT
  Age: 52 Year
  Sex: Male
  Weight: 122.45 kg

DRUGS (2)
  1. CONTRAVE [Suspect]
     Active Substance: BUPROPION HYDROCHLORIDE\NALTREXONE HYDROCHLORIDE
     Indication: Weight control
     Dosage: 90/8 MG, 1 TABLET/DAY
     Route: 048
     Dates: start: 20240320, end: 20240321
  2. PERIDOR [Concomitant]
     Indication: Hypertension
     Dosage: 8MG/2.5MG (1 IN 1 D)
     Route: 048

REACTIONS (5)
  - Angina pectoris [Recovered/Resolved]
  - Somnolence [Recovered/Resolved]
  - Headache [Recovered/Resolved]
  - Nausea [Recovered/Resolved]
  - Dizziness [Recovered/Resolved]

NARRATIVE: CASE EVENT DATE: 20240320
